FAERS Safety Report 15812094 (Version 1)
Quarter: 2019Q1

REPORT INFORMATION
  Report Type: Report from Study
  Country: DE (occurrence: DE)
  Receive Date: 20190111
  Receipt Date: 20190111
  Transmission Date: 20190417
  Serious: No
  Sender: FDA-Public Use
  Company Number: DE-ROCHE-2243111

PATIENT
  Age: 47 Year
  Sex: Female

DRUGS (2)
  1. FAMPYRA [Concomitant]
     Active Substance: DALFAMPRIDINE
     Indication: GAIT DISTURBANCE
     Route: 048
     Dates: start: 201508
  2. OCRELIZUMAB. [Suspect]
     Active Substance: OCRELIZUMAB
     Indication: MULTIPLE SCLEROSIS
     Dosage: DATE OF MOST RECENT DOSE: 18/JUN/2018?START DATE: 04/JUN/2018
     Route: 042

REACTIONS (2)
  - Cystitis [Recovered/Resolved]
  - Multiple-drug resistance [Recovered/Resolved]

NARRATIVE: CASE EVENT DATE: 201806
